FAERS Safety Report 5503557-2 (Version None)
Quarter: 2007Q4

REPORT INFORMATION
  Report Type: 
  Country: None (occurrence: None)
  Receive Date: 20071029
  Receipt Date: 20071018
  Transmission Date: 20080405
  Serious: Yes (Other)
  Sender: FDA-Public Use
  Company Number: 2007SP021134

PATIENT
  Age: 22 Year
  Sex: Male
  Weight: 60 kg

DRUGS (2)
  1. LORATADINE [Suspect]
     Indication: HYPERSENSITIVITY
     Dosage: 10 MG; QD; PO
     Route: 048
     Dates: start: 20070911, end: 20070911
  2. VITAMEDIN (VITAMEDIN) [Suspect]
     Indication: PAIN
     Dosage: ; PO
     Route: 048
     Dates: start: 20070911, end: 20070911

REACTIONS (3)
  - ARTHRALGIA [None]
  - EXTRASYSTOLES [None]
  - PALPITATIONS [None]
